FAERS Safety Report 6671672-6 (Version None)
Quarter: 2010Q2

REPORT INFORMATION
  Report Type: 
  Country: None (occurrence: None)
  Receive Date: 20100406
  Receipt Date: 20100406
  Transmission Date: 20101027
  Serious: Yes (Hospitalization)
  Sender: FDA-Public Use
  Company Number: None

PATIENT
  Age: 78 Year
  Sex: Male
  Weight: 161 kg

DRUGS (1)
  1. AMIODARONE HCL [Suspect]
     Indication: ARRHYTHMIA
     Dosage: 200MG BID PO, UNKNOWN DURATION PTA
     Route: 048

REACTIONS (3)
  - DYSPNOEA [None]
  - LUNG INFILTRATION [None]
  - PULMONARY FIBROSIS [None]
